FAERS Safety Report 10547326 (Version 5)
Quarter: 2015Q1

REPORT INFORMATION
  Report Type: Spontaneous
  Country: US (occurrence: US)
  Receive Date: 20141028
  Receipt Date: 20150318
  Transmission Date: 20150720
  Serious: Yes (Hospitalization, Other)
  Sender: FDA-Public Use
  Company Number: US-PFIZER INC-2014290720

PATIENT
  Age: 71 Year
  Sex: Male
  Weight: 91 kg

DRUGS (35)
  1. ANUSOL-HC [Concomitant]
     Dosage: UNK, AS NEEDED (2.5 % CREAM TAKE 1 TOPICAL APPLICATION TOPICAL QID PRN)
     Dates: start: 201406
  2. ATIVAN [Concomitant]
     Active Substance: LORAZEPAM
     Indication: NAUSEA
     Dosage: 1 MG, AS NEEDED (1DF Q4H)
     Route: 048
     Dates: start: 201406
  3. LOSARTAN POTASSIUM. [Concomitant]
     Active Substance: LOSARTAN POTASSIUM
     Dosage: 100 MG, DAILY (1DF)
     Route: 048
     Dates: start: 201407, end: 20150128
  4. ZOLOFT [Concomitant]
     Active Substance: SERTRALINE HYDROCHLORIDE
     Dosage: UNK
     Dates: start: 201406
  5. TRAZODONE HYDROCHLORIDE. [Concomitant]
     Active Substance: TRAZODONE HYDROCHLORIDE
     Indication: SLEEP DISORDER
     Dosage: 50 MG, UNK (1-2 AT HS FOR SLEEP, INSTRUCTIONS: 1-2 AT HS FOR SLEEP)
     Route: 048
     Dates: start: 201412
  6. SUTENT [Suspect]
     Active Substance: SUNITINIB MALATE
     Dosage: 37.5 MG (12.5 MG 3 TIMES A DAY) FOR 14 ON AND 7OFF
     Route: 048
     Dates: end: 20150128
  7. AMLODIPINE BESYLATE. [Concomitant]
     Active Substance: AMLODIPINE BESYLATE
     Dosage: 5 MG, DAILY  (1 DF)
     Route: 048
     Dates: start: 201406, end: 20150128
  8. HYDROCHLOROTHIAZIDE. [Concomitant]
     Active Substance: HYDROCHLOROTHIAZIDE
     Dosage: 25 MG, DAILY (1 DF)
     Route: 048
     Dates: start: 201406, end: 20150128
  9. XARELTO [Concomitant]
     Active Substance: RIVAROXABAN
     Dosage: 20 MG, DAILY
     Route: 048
     Dates: start: 201406
  10. FLONASE [Concomitant]
     Active Substance: FLUTICASONE PROPIONATE
     Dosage: UNK (50 MCG SPRAY, SUSPENSION TAKE 1 INHALATION ROUTE DAILY)
     Dates: start: 201406
  11. ONDANSETRON HYDROCHLORIDE. [Concomitant]
     Active Substance: ONDANSETRON HYDROCHLORIDE
     Indication: NAUSEA
     Dosage: 8 MG, AS NEEDED (1 DF Q8H PRN)
     Route: 048
     Dates: start: 201409
  12. PROBIOTICS [Concomitant]
     Active Substance: PROBIOTICS NOS
     Dosage: 1 DF, DAILY (TAKE 1 PO DAILY)
     Route: 048
     Dates: start: 201406
  13. ZYRTEC [Concomitant]
     Active Substance: CETIRIZINE HYDROCHLORIDE
     Dosage: 10 MG, DAILY
     Dates: start: 201406
  14. CIPROFLOXACIN HCL [Concomitant]
     Active Substance: CIPROFLOXACIN HYDROCHLORIDE
     Dosage: 1 DF, 4X/DAY (0.3 % DROPS TAKE ^I DROP(S) OU Q4H FOR EYE INFECTION X 5 DAYS)
     Dates: start: 201409, end: 201410
  15. HYDRALAZINE HCL [Concomitant]
     Active Substance: HYDRALAZINE HYDROCHLORIDE
     Dosage: 10 MG, DAILY (1 DF)
     Route: 048
     Dates: start: 201407, end: 20150128
  16. HYDROCODONE BITARTRATE AND ACETAMINOPHEN [Concomitant]
     Active Substance: ACETAMINOPHEN\HYDROCODONE BITARTRATE
     Indication: PAIN
     Dosage: 1 DF, AS NEEDED (10 MG-325MG TABLET(S) TAKE 1)
     Route: 048
     Dates: start: 201405
  17. ZOLOFT [Concomitant]
     Active Substance: SERTRALINE HYDROCHLORIDE
     Dosage: 50 MG, DAILY
     Route: 048
  18. METRONIDAZOLE. [Concomitant]
     Active Substance: METRONIDAZOLE
     Dosage: 500 MG, 3X/DAY
  19. ACYCLOVIR. [Concomitant]
     Active Substance: ACYCLOVIR
     Dosage: 800 MG, (TAKE 1, 5 TIMES DAILY.)
     Route: 048
  20. FLAGYL [Concomitant]
     Active Substance: METRONIDAZOLE\METRONIDAZOLE HYDROCHLORIDE
     Dosage: 500 MG, 3X/DAY (1 DF)
     Route: 048
     Dates: start: 201501, end: 201502
  21. PROCHLORPERAZINE MALEATE. [Concomitant]
     Active Substance: PROCHLORPERAZINE MALEATE
     Indication: NAUSEA
     Dosage: 10 MG, AS NEEDED (1 DF Q4-6H PRN)
     Route: 048
     Dates: start: 201406
  22. TEMAZEPAM. [Concomitant]
     Active Substance: TEMAZEPAM
     Dosage: 15 MG, DAILY (AT BEDTIME)
     Route: 048
     Dates: start: 201406, end: 201412
  23. LORAZEPAM. [Concomitant]
     Active Substance: LORAZEPAM
     Indication: NAUSEA
     Dosage: 1 MG, AS NEEDED (1 MG TABLET(S), TAKE 1 TABLET BY MOUTH EVERY 4 HOURS AS NEEDED)
     Route: 048
     Dates: start: 201407
  24. SUTENT [Suspect]
     Active Substance: SUNITINIB MALATE
     Indication: RENAL CANCER STAGE IV
     Dosage: 37.5 MG DAILY FOR 14 DAYS/ THEN 7 DAYS OFF)
     Route: 048
     Dates: start: 20140611, end: 201410
  25. ATORVASTATIN CALCIUM. [Concomitant]
     Active Substance: ATORVASTATIN CALCIUM
     Dosage: 40 MG, DAILY  (1 DF)
     Route: 048
     Dates: start: 201406
  26. COLACE [Concomitant]
     Active Substance: DOCUSATE SODIUM
     Dosage: 100 MG, AS NEEDED (1DF BID PRN)
     Route: 048
     Dates: start: 201409
  27. FERRALET 90 [Concomitant]
     Active Substance: ASCORBIC ACID\CYANOCOBALAMIN\DOCUSATE SODIUM\FOLIC ACID\IRON
     Dosage: 1 DF, DAILY (90-1-50 MG TABLET(S) TAKE 1 PO DAILY)
     Route: 048
     Dates: start: 201409, end: 201409
  28. METFORMIN HCL [Concomitant]
     Active Substance: METFORMIN HYDROCHLORIDE
     Dosage: 1000 MG, 2X/DAY (1 DF TAKE WITH MEALS)
     Route: 048
     Dates: start: 201405
  29. MIRALAX [Concomitant]
     Active Substance: POLYETHYLENE GLYCOL 3350
     Dosage: 17 G, DAILY ( AS DIRECTED)
     Route: 048
     Dates: start: 201409, end: 20140924
  30. FERREX [Concomitant]
     Dosage: 1 DF, DAILY (150-25-1 CAPSULE(S) TAKE 1 PO DAILY)
     Route: 048
     Dates: start: 201406
  31. ZOLOFT [Concomitant]
     Active Substance: SERTRALINE HYDROCHLORIDE
     Dosage: 25 MG, DAILY
     Route: 048
  32. IMODIUM [Concomitant]
     Active Substance: LOPERAMIDE HYDROCHLORIDE
     Dosage: UNK, 1X/DAY
     Route: 048
     Dates: start: 201409, end: 20150128
  33. SUTENT [Suspect]
     Active Substance: SUNITINIB MALATE
     Dosage: 25 MG, CYCLIC
     Dates: start: 201410
  34. IRON [Concomitant]
     Active Substance: IRON
     Dosage: 1 DF, 1X/DAY (325(65) MG TABLET(S) TAKE 1 PO QHS)
     Route: 048
     Dates: start: 201406
  35. LEVOTHYROXINE SODIUM. [Concomitant]
     Active Substance: LEVOTHYROXINE SODIUM
     Dosage: 0.125 MG, DAILY (1 DF)
     Route: 048
     Dates: start: 201401

REACTIONS (18)
  - Dry skin [Unknown]
  - Dyspepsia [Unknown]
  - Blood pressure increased [Recovered/Resolved]
  - Blood albumin decreased [Unknown]
  - Skin irritation [Recovered/Resolved]
  - Hepatic enzyme increased [Recovered/Resolved]
  - Asthenia [Unknown]
  - Cholelithiasis [Recovered/Resolved]
  - Malaise [Recovered/Resolved]
  - Nausea [Recovered/Resolved]
  - Cholecystitis [Recovered/Resolved]
  - Diarrhoea [Recovered/Resolved]
  - Clostridium difficile infection [Recovered/Resolved]
  - Tremor [Recovered/Resolved]
  - Haemorrhoidal haemorrhage [Recovered/Resolved]
  - Oedema peripheral [Recovered/Resolved]
  - Fatigue [Not Recovered/Not Resolved]
  - Blood glucose increased [Recovered/Resolved]

NARRATIVE: CASE EVENT DATE: 2014
